FAERS Safety Report 16350330 (Version 1)
Quarter: 2019Q2

REPORT INFORMATION
  Report Type: Spontaneous
  Country: US (occurrence: US)
  Receive Date: 20190524
  Receipt Date: 20190524
  Transmission Date: 20190711
  Serious: No
  Sender: FDA-Public Use
  Company Number: US-ASTRAZENECA-2019SE65173

PATIENT
  Age: 22266 Day
  Sex: Female
  Weight: 64.4 kg

DRUGS (1)
  1. SYMBICORT [Suspect]
     Active Substance: BUDESONIDE\FORMOTEROL FUMARATE DIHYDRATE
     Indication: BRONCHIAL HYPERREACTIVITY
     Dosage: 160-4.5 MCG, TWO PUFFS IN THE AM AND PM
     Route: 055

REACTIONS (8)
  - Cough [Not Recovered/Not Resolved]
  - Device issue [Unknown]
  - Circumstance or information capable of leading to medication error [Recovered/Resolved]
  - Product dose omission [Recovered/Resolved]
  - Productive cough [Not Recovered/Not Resolved]
  - Intentional device misuse [Recovered/Resolved]
  - Wheezing [Not Recovered/Not Resolved]
  - Nasopharyngitis [Recovered/Resolved]

NARRATIVE: CASE EVENT DATE: 20190420
